FAERS Safety Report 23772621 (Version 1)
Quarter: 2024Q2

REPORT INFORMATION
  Report Type: Spontaneous
  Country: DE (occurrence: DE)
  Receive Date: 20240423
  Receipt Date: 20240423
  Transmission Date: 20240716
  Serious: Yes (Hospitalization)
  Sender: FDA-Public Use
  Company Number: DE-BAYER-2024A054064

PATIENT
  Age: 32 Year
  Sex: Female

DRUGS (1)
  1. KYLEENA [Suspect]
     Active Substance: LEVONORGESTREL
     Indication: Contraception
     Dosage: 17.5?G/DAY
     Route: 015
     Dates: start: 20210531, end: 20240404

REACTIONS (13)
  - Extrasystoles [Recovered/Resolved]
  - Palpitations [Recovered/Resolved]
  - Fatigue [Recovering/Resolving]
  - Depressed mood [Recovering/Resolving]
  - Abdominal pain [Recovered/Resolved]
  - Androgenetic alopecia [Recovering/Resolving]
  - Ovarian cyst [Recovering/Resolving]
  - Myalgia [Recovering/Resolving]
  - Human seminal plasma hypersensitivity [Not Recovered/Not Resolved]
  - Heart rate increased [Not Recovered/Not Resolved]
  - Sleep disorder [Not Recovered/Not Resolved]
  - Anxiety disorder [Recovered/Resolved]
  - Influenza [None]

NARRATIVE: CASE EVENT DATE: 20210531
